FAERS Safety Report 14561582 (Version 1)
Quarter: 2018Q1

REPORT INFORMATION
  Report Type: Spontaneous
  Country: US (occurrence: US)
  Receive Date: 20180222
  Receipt Date: 20180222
  Transmission Date: 20180509
  Serious: No
  Sender: FDA-Public Use
  Company Number: US-TEVA-744337ACC

PATIENT
  Age: 73 Year
  Sex: Female
  Weight: 56.69 kg

DRUGS (4)
  1. XANAX [Concomitant]
     Active Substance: ALPRAZOLAM
     Dates: start: 201611
  2. FISH OIL [Concomitant]
     Active Substance: FISH OIL
  3. LEVOTHYROXINE. [Concomitant]
     Active Substance: LEVOTHYROXINE
  4. CETIRIZINE  HYDROCHLORIDE-PSEUDOEPHEDRINE HYDROCHLORIDE ER 176 [Suspect]
     Active Substance: CETIRIZINE HYDROCHLORIDE\PSEUDOEPHEDRINE HYDROCHLORIDE
     Indication: NASAL CONGESTION
     Dosage: DAILY DOSE:1/2 TABLET, SINGLE; PSEUDOEPHEDRINE 120MG, CETIRIZINE 5MG
     Route: 048
     Dates: start: 20170206, end: 20170206

REACTIONS (4)
  - Incorrect dose administered [Unknown]
  - Drug administered to patient of inappropriate age [Unknown]
  - Wrong technique in product usage process [Unknown]
  - Somnolence [Not Recovered/Not Resolved]

NARRATIVE: CASE EVENT DATE: 20170206
